FAERS Safety Report 8131237-6 (Version None)
Quarter: 2012Q1

REPORT INFORMATION
  Report Type: 
  Country: None (occurrence: None)
  Receive Date: 20120213
  Receipt Date: 20120209
  Transmission Date: 20120608
  Serious: Yes (Other)
  Sender: FDA-Public Use
  Company Number: US-AMGEN-USASP2011050822

PATIENT
  Age: 47 Year
  Sex: Male
  Weight: 99.773 kg

DRUGS (2)
  1. RITUXAN [Concomitant]
     Dosage: UNK
     Dates: start: 20101004, end: 20101025
  2. NPLATE [Suspect]
     Indication: IDIOPATHIC THROMBOCYTOPENIC PURPURA
     Dosage: 300 MUG, QWK
     Route: 058
     Dates: start: 20091029, end: 20110204

REACTIONS (2)
  - SPLENOMEGALY [None]
  - THERAPEUTIC RESPONSE DECREASED [None]
